FAERS Safety Report 24367900 (Version 1)
Quarter: 2024Q3

REPORT INFORMATION
  Report Type: Report from Study
  Country: GB (occurrence: GB)
  Receive Date: 20240926
  Receipt Date: 20240926
  Transmission Date: 20241017
  Serious: Yes (Life-Threatening, Hospitalization)
  Sender: JOHNSON AND JOHNSON
  Company Number: GB-ACTELION-A-CH2010-36072

PATIENT
  Age: 23 Year
  Sex: Female

DRUGS (6)
  1. BOSENTAN [Suspect]
     Active Substance: BOSENTAN
     Indication: Pulmonary arterial hypertension
     Dosage: 125 MG, BID
     Route: 048
     Dates: start: 20020817, end: 20021230
  2. BOSENTAN [Suspect]
     Active Substance: BOSENTAN
     Dosage: 62.5 MG, BID
     Route: 048
     Dates: start: 20020717, end: 20020816
  3. BOSENTAN [Suspect]
     Active Substance: BOSENTAN
     Dosage: 125 MG, BID
     Route: 048
     Dates: start: 20030523
  4. VENTAVIS [Concomitant]
     Active Substance: ILOPROST
     Indication: Pulmonary arterial hypertension
     Dosage: 6.6 NG, UNK
     Route: 045
  5. WARFARIN [Concomitant]
     Active Substance: WARFARIN
     Dates: end: 20021231
  6. TINZAPARIN SODIUM [Concomitant]
     Active Substance: TINZAPARIN SODIUM
     Dosage: .5 ML, UNK
     Route: 058

REACTIONS (12)
  - Cardio-respiratory arrest [Recovered/Resolved]
  - Pulmonary arterial hypertension [Recovered/Resolved]
  - Condition aggravated [Recovered/Resolved]
  - Pregnancy [Recovered/Resolved]
  - Uterine contractions during pregnancy [Unknown]
  - Transfusion [Unknown]
  - Anaemia [Unknown]
  - Premature baby [Unknown]
  - Dyspnoea [Recovered/Resolved]
  - Cough [Recovered/Resolved]
  - Female sterilisation [Unknown]
  - Caesarean section [Unknown]

NARRATIVE: CASE EVENT DATE: 20021230
